FAERS Safety Report 25754575 (Version 1)
Quarter: 2025Q3

REPORT INFORMATION
  Report Type: Spontaneous
  Country: EU (occurrence: EU)
  Receive Date: 20250903
  Receipt Date: 20250903
  Transmission Date: 20251020
  Serious: No
  Sender: ALKEM
  Company Number: EU-ALKEM LABORATORIES LIMITED-DE-ALKEM-2025-04254

PATIENT
  Sex: Female

DRUGS (1)
  1. PREGABALIN [Suspect]
     Active Substance: PREGABALIN
     Indication: Small fibre neuropathy
     Route: 065

REACTIONS (3)
  - Dry mouth [Recovered/Resolved]
  - Memory impairment [Recovered/Resolved]
  - Off label use [Unknown]
